FAERS Safety Report 6719241-3 (Version None)
Quarter: 2010Q2

REPORT INFORMATION
  Report Type: 
  Country: None (occurrence: None)
  Receive Date: 20100511
  Receipt Date: 20100504
  Transmission Date: 20101027
  Serious: Yes (Death, Hospitalization, Other)
  Sender: FDA-Public Use
  Company Number: US-BAXTER-2010BH010811

PATIENT
  Age: 41 Year
  Sex: Male

DRUGS (1)
  1. HEMOFIL M [Suspect]
     Indication: HAEMOPHILIA
     Route: 065
     Dates: end: 20091020

REACTIONS (1)
  - HEPATIC FAILURE [None]
